FAERS Safety Report 13089294 (Version 2)
Quarter: 2017Q2

REPORT INFORMATION
  Report Type: Report from Study
  Country: JP (occurrence: JP)
  Receive Date: 20170105
  Receipt Date: 20170512
  Transmission Date: 20170830
  Serious: Yes (Life-Threatening, Other)
  Sender: FDA-Public Use
  Company Number: JP-PFIZER INC-2017002636

PATIENT
  Age: 45 Year
  Sex: Female

DRUGS (3)
  1. CEFTRIAXONE SODIUM. [Suspect]
     Active Substance: CEFTRIAXONE SODIUM
     Indication: PYREXIA
  2. CEFTRIAXONE SODIUM. [Suspect]
     Active Substance: CEFTRIAXONE SODIUM
     Indication: PHARYNGITIS
     Dosage: UNK
  3. TOLAZOLINE HYDROCHLORIDE. [Suspect]
     Active Substance: TOLAZOLINE HYDROCHLORIDE
     Indication: INSOMNIA
     Dosage: UNK

REACTIONS (3)
  - Hypokalaemia [Unknown]
  - Torsade de pointes [Unknown]
  - Long QT syndrome [Not Recovered/Not Resolved]
